FAERS Safety Report 23223747 (Version 3)
Quarter: 2024Q1

REPORT INFORMATION
  Report Type: Report from Study
  Country: US (occurrence: US)
  Receive Date: 20231124
  Receipt Date: 20240112
  Transmission Date: 20240410
  Serious: Yes (Hospitalization, Other)
  Sender: FDA-Public Use
  Company Number: US-HORIZON THERAPEUTICS-HZN-2023-007496

PATIENT

DRUGS (8)
  1. TEPEZZA [Suspect]
     Active Substance: TEPROTUMUMAB-TRBW
     Indication: Endocrine ophthalmopathy
     Dosage: FIRST DOSE
     Route: 065
     Dates: start: 20200602
  2. TEPEZZA [Suspect]
     Active Substance: TEPROTUMUMAB-TRBW
     Dosage: 740 MG, OVER 90 MINUTES
     Route: 042
     Dates: start: 20230612
  3. TEPEZZA [Suspect]
     Active Substance: TEPROTUMUMAB-TRBW
     Dosage: 1480 MG, OVER 60 MINUTES
     Route: 042
     Dates: start: 20230703
  4. TEPEZZA [Suspect]
     Active Substance: TEPROTUMUMAB-TRBW
     Dosage: 1480 MG, OVER 60 MINUTES
     Route: 042
     Dates: start: 20230724
  5. TEPEZZA [Suspect]
     Active Substance: TEPROTUMUMAB-TRBW
     Dosage: 1480 MG, OVER 60 MINUTES
     Route: 042
     Dates: start: 20230814
  6. TEPEZZA [Suspect]
     Active Substance: TEPROTUMUMAB-TRBW
     Dosage: 1480 MG, OVER 60 MINUTES
     Route: 042
     Dates: start: 20230927
  7. TEPEZZA [Suspect]
     Active Substance: TEPROTUMUMAB-TRBW
     Dosage: 1480 MG, OVER 61 MINUTES
     Route: 042
     Dates: start: 20231025
  8. TEPEZZA [Suspect]
     Active Substance: TEPROTUMUMAB-TRBW
     Dosage: 1480 MG, OVER 61 MINUTES
     Route: 042
     Dates: start: 20231124

REACTIONS (15)
  - Vomiting [Not Recovered/Not Resolved]
  - Diarrhoea [Unknown]
  - Thrombosis [Unknown]
  - Back pain [Unknown]
  - Pain in extremity [Unknown]
  - Amnesia [Unknown]
  - Diabetes mellitus [Unknown]
  - Hyperlipidaemia [Unknown]
  - Hypertension [Unknown]
  - Anxiety [Unknown]
  - Hypothyroidism [Unknown]
  - Urinary tract infection [Unknown]
  - Hydronephrosis [Unknown]
  - Acute kidney injury [Unknown]
  - Exophthalmos [Unknown]
